FAERS Safety Report 9467245 (Version 1)
Quarter: 2013Q3

REPORT INFORMATION
  Report Type: Spontaneous
  Country: US (occurrence: US)
  Receive Date: 20130821
  Receipt Date: 20130821
  Transmission Date: 20140515
  Serious: No
  Sender: FDA-Public Use
  Company Number: US-BIOGENIDEC-2013BI066240

PATIENT
  Sex: Female

DRUGS (1)
  1. AVONEX [Suspect]
     Indication: MULTIPLE SCLEROSIS
     Route: 030
     Dates: start: 20130313

REACTIONS (12)
  - Fear [Unknown]
  - Diplopia [Unknown]
  - Musculoskeletal disorder [Unknown]
  - Weight increased [Not Recovered/Not Resolved]
  - Viral infection [Unknown]
  - Gastric disorder [Unknown]
  - Tremor [Recovered/Resolved]
  - Fatigue [Unknown]
  - Muscular weakness [Unknown]
  - Malaise [Unknown]
  - Depressed mood [Unknown]
  - Anxiety [Unknown]
